FAERS Safety Report 6384539-8 (Version None)
Quarter: 2009Q3

REPORT INFORMATION
  Report Type: 
  Country: None (occurrence: None)
  Receive Date: 20090924
  Receipt Date: 20090309
  Transmission Date: 20100115
  Serious: No
  Sender: FDA-Public Use
  Company Number: US-CVT-090041

PATIENT
  Sex: Female

DRUGS (1)
  1. RANEXA [Suspect]
     Indication: RAYNAUD'S PHENOMENON

REACTIONS (2)
  - OFF LABEL USE [None]
  - THERAPEUTIC RESPONSE UNEXPECTED [None]
